FAERS Safety Report 18751502 (Version 2)
Quarter: 2021Q1

REPORT INFORMATION
  Report Type: Spontaneous
  Country: IN (occurrence: IN)
  Receive Date: 20210118
  Receipt Date: 20210202
  Transmission Date: 20210419
  Serious: Yes (Other)
  Sender: FDA-Public Use
  Company Number: IN-CIPLA LTD.-2020IN09601

PATIENT

DRUGS (10)
  1. FORACORT 400 [Suspect]
     Active Substance: BUDESONIDE\FORMOTEROL
     Dosage: UNK
     Route: 065
     Dates: end: 202012
  2. ROSUVAS [Concomitant]
     Active Substance: ROSUVASTATIN CALCIUM
     Indication: BLOOD PRESSURE ABNORMAL
     Dosage: UNK, QD (ONCE A DAY), FOR 20 YEARS
     Route: 065
  3. DUOLIN (IPRATROPIUM\LEVOSALBUTAMOL) [Suspect]
     Active Substance: IPRATROPIUM BROMIDE\LEVALBUTEROL SULFATE
     Indication: ASTHMA
     Dosage: UNK
     Route: 065
  4. BUDECORT [Suspect]
     Active Substance: BUDESONIDE
     Indication: ASTHMA
     Dosage: UNK, MANY YEARS AGO
     Route: 065
  5. CTD [Concomitant]
     Indication: BLOOD PRESSURE ABNORMAL
     Dosage: 6.25, ONCE A DAY, FOR 20 YEARS)
     Route: 065
  6. GALVUS MET [METFORMIN;VILDAGLIPTIN] [Concomitant]
     Active Substance: METFORMIN\VILDAGLIPTIN
     Indication: DIABETES MELLITUS
     Dosage: 50/100/TWICE A DAY
     Route: 065
     Dates: start: 2019
  7. CALCIUM [Concomitant]
     Active Substance: CALCIUM
     Indication: OSTEOPOROSIS
     Dosage: 500 MILLIGRAM, QD, FOR 20 YEAR
     Route: 065
  8. FORACORT 400 [Suspect]
     Active Substance: BUDESONIDE\FORMOTEROL
     Indication: ASTHMA
     Dosage: UNK, BID, MANY YEARS AGO
     Route: 065
  9. TELMA [Concomitant]
     Active Substance: TELMISARTAN
     Indication: BLOOD PRESSURE ABNORMAL
     Dosage: UNK, QD (ONCE A DAY), FOR 20 YEARS
     Route: 065
  10. STAMLO [Concomitant]
     Active Substance: AMLODIPINE BESYLATE
     Indication: BLOOD PRESSURE ABNORMAL
     Dosage: 2.5 MILLIGRAM, QD, FOR 20 YEARS
     Route: 065

REACTIONS (8)
  - Dyspnoea [Recovered/Resolved]
  - Product odour abnormal [Unknown]
  - Product packaging confusion [Unknown]
  - Therapeutic product effect decreased [Unknown]
  - Device malfunction [Unknown]
  - Drug ineffective [Unknown]
  - Product administration error [Unknown]
  - Inappropriate schedule of product administration [Unknown]

NARRATIVE: CASE EVENT DATE: 202012
